FAERS Safety Report 25236494 (Version 1)
Quarter: 2025Q2

REPORT INFORMATION
  Report Type: Spontaneous
  Country: US (occurrence: US)
  Receive Date: 20250424
  Receipt Date: 20250424
  Transmission Date: 20250717
  Serious: No
  Sender: PFIZER
  Company Number: US-PFIZER INC-202500085367

PATIENT
  Age: 43 Year
  Sex: Female

DRUGS (1)
  1. PREMPRO [Suspect]
     Active Substance: ESTROGENS, CONJUGATED\MEDROXYPROGESTERONE ACETATE
     Dates: start: 20250419, end: 20250420

REACTIONS (2)
  - Vertigo [Recovering/Resolving]
  - Coordination abnormal [Recovering/Resolving]

NARRATIVE: CASE EVENT DATE: 20250420
